FAERS Safety Report 8117857-3 (Version None)
Quarter: 2012Q1

REPORT INFORMATION
  Report Type: 
  Country: None (occurrence: None)
  Receive Date: 20120207
  Receipt Date: 20120130
  Transmission Date: 20120608
  Serious: Yes (Other)
  Sender: FDA-Public Use
  Company Number: US-BAYER-2011-032328

PATIENT
  Age: 47 Year
  Sex: Male

DRUGS (5)
  1. NEXAVAR [Suspect]
     Dosage: 400 MG, BID
  2. NEXAVAR [Suspect]
     Dosage: 400 MG ONE DAY ALTERNATING WITH 200 MG THE NEXT DAY
  3. NEXAVAR [Suspect]
     Dosage: 200 MG, BID
     Route: 048
     Dates: start: 20110420
  4. NEXAVAR [Suspect]
     Indication: THYROID CANCER
     Dosage: 400 MG, BID
     Route: 048
     Dates: start: 20110406, end: 20110413
  5. NEXAVAR [Suspect]
     Dosage: 200 MG, QD
     Route: 048

REACTIONS (9)
  - DIARRHOEA [None]
  - BURNING SENSATION [None]
  - GINGIVAL PAIN [None]
  - BLISTER [None]
  - PAIN IN EXTREMITY [None]
  - SKIN EXFOLIATION [None]
  - IMPAIRED WORK ABILITY [None]
  - PALMAR-PLANTAR ERYTHRODYSAESTHESIA SYNDROME [None]
  - GLOSSODYNIA [None]
